FAERS Safety Report 6043259-X (Version None)
Quarter: 2009Q1

REPORT INFORMATION
  Report Type: 
  Country: None (occurrence: None)
  Receive Date: 20090119
  Receipt Date: 20090107
  Transmission Date: 20090719
  Serious: Yes (Death, Other)
  Sender: FDA-Public Use
  Company Number: US-ELI_LILLY_AND_COMPANY-US200901000992

PATIENT
  Age: 60 Year
  Sex: Male

DRUGS (3)
  1. CYMBALTA [Suspect]
     Indication: NEURALGIA
     Dosage: 60 MG, DAILY (1/D)
     Dates: start: 20060101
  2. TRAMADOL HCL [Concomitant]
  3. LYRICA [Concomitant]

REACTIONS (3)
  - DEATH [None]
  - DRUG INTERACTION [None]
  - MYOCARDIAL INFARCTION [None]
